FAERS Safety Report 9403419 (Version 2)
Quarter: 2014Q1

REPORT INFORMATION
  Report Type: Spontaneous
  Country: GB (occurrence: GB)
  Receive Date: 20130716
  Receipt Date: 20140121
  Transmission Date: 20141002
  Serious: Yes (Other)
  Sender: FDA-Public Use
  Company Number: GB-UCBSA-091346

PATIENT
  Age: 53 Year
  Sex: Female
  Weight: 66 kg

DRUGS (16)
  1. ISOSORBIDE MONONITRATE [Suspect]
     Indication: VASODILATION PROCEDURE
     Dosage: TWO DOSES :10MG AT 13:50PM AND 20MG AT 18:00PM
     Route: 048
     Dates: start: 20130619, end: 20130620
  2. ISOSORBIDE MONONITRATE [Suspect]
     Indication: HYPERTENSION
     Dosage: TWO DOSES :10MG AT 13:50PM AND 20MG AT 18:00PM
     Route: 048
     Dates: start: 20130619, end: 20130620
  3. AMLODIPINE [Concomitant]
     Dosage: UNSPECIFIED
     Dates: start: 20130611
  4. AMPHOTERICIN B [Concomitant]
     Dosage: UNSPECIFIED DOSE
     Dates: start: 20130605
  5. COLISTIN [Concomitant]
     Dosage: UNSPECIFIED DOSE
     Dates: start: 20130605
  6. DIAZEPAM [Concomitant]
     Dosage: UNSPECIFIED DOSE
  7. ALFENTANIL [Concomitant]
     Dosage: UNSPECIFIED
  8. ENOXAPARIN [Concomitant]
     Dosage: UNSPECIFIED DOSE
     Dates: start: 20130531
  9. LANSOPRAZOLE [Concomitant]
     Dosage: UNSPECIFIED DOSE
  10. MEROPENEM [Concomitant]
     Dosage: UNSPECIFIED DOSE
     Dates: start: 20130612, end: 20130621
  11. PARACETAMOL [Concomitant]
     Dosage: UNSPECIFIED DOSE
     Dates: start: 20130609
  12. PIPERACILLIN AND TAZOBACTUM [Concomitant]
     Dosage: UNSPECIFIED DOSE
  13. PROPOFOL - LIPURO [Concomitant]
     Dosage: UNSPECIFIED DOSE
  14. RANITIDINE [Concomitant]
     Dosage: UNSPECIFIED DOSE
  15. TOBRAMYCIN [Concomitant]
     Dosage: UNSPECIFIED DOSE
     Dates: start: 20130605
  16. CLINDAMYCIN [Concomitant]
     Dates: start: 20130531, end: 20130614

REACTIONS (2)
  - Rash [Recovered/Resolved]
  - Swollen tongue [Recovered/Resolved]
